FAERS Safety Report 6080203-3 (Version None)
Quarter: 2009Q1

REPORT INFORMATION
  Report Type: 
  Country: None (occurrence: None)
  Receive Date: 20090212
  Receipt Date: 20090203
  Transmission Date: 20090719
  Serious: Yes (Other)
  Sender: FDA-Public Use
  Company Number: GXKR2009GB01364

PATIENT
  Age: 33 Year
  Sex: Male

DRUGS (9)
  1. HALOPERIDOL [Suspect]
     Indication: SCHIZOPHRENIA, PARANOID TYPE
     Dosage: 10 MG, QD, ORAL
     Route: 048
     Dates: start: 20030201
  2. RISPERDAL [Suspect]
     Indication: SCHIZOPHRENIA, PARANOID TYPE
     Dosage: 6 MG, QD, ORAL
     Route: 048
     Dates: start: 20030201
  3. RISPERDAL CONSTA [Suspect]
     Indication: SCHIZOPHRENIA, PARANOID TYPE
     Dosage: 25 MG, , INTRAMUSCULAR
     Route: 030
     Dates: start: 20030801, end: 20031001
  4. DEPIXOL (FLUPENTIXOL DECANOATE) [Concomitant]
  5. DIAZEPAM [Concomitant]
  6. OLANZAPINE [Concomitant]
  7. TRIFLUOPERAZINE HCL [Concomitant]
  8. VENLAFAXINE HCL [Concomitant]
  9. ZIMOVANE (ZOPICLONE) [Concomitant]

REACTIONS (9)
  - CONSTIPATION [None]
  - EATING DISORDER [None]
  - EMOTIONAL DISTRESS [None]
  - HAEMORRHOIDS [None]
  - INSOMNIA [None]
  - INTENTIONAL SELF-INJURY [None]
  - RECTAL HAEMORRHAGE [None]
  - SUICIDE ATTEMPT [None]
  - WEIGHT DECREASED [None]
